FAERS Safety Report 5214857-8 (Version None)
Quarter: 2007Q1

REPORT INFORMATION
  Report Type: 
  Country: None (occurrence: None)
  Receive Date: 20061107
  Receipt Date: 20060608
  Transmission Date: 20070707
  Serious: No
  Sender: FDA-Public Use
  Company Number: 200614009BWH

PATIENT
  Age: 71 Year
  Sex: Male

DRUGS (9)
  1. LEVITRA [Suspect]
     Indication: ERECTILE DYSFUNCTION
     Dosage: 20 MG, ONCE, ORAL
     Route: 048
     Dates: start: 20060101
  2. COREG [Concomitant]
  3. DIGOXIN [Concomitant]
  4. LEVOXYL [Concomitant]
  5. IMIPRAMINE [Concomitant]
  6. PROTONIX [Concomitant]
  7. COUMADIN [Concomitant]
  8. ASPIRIN [Concomitant]
  9. ALDACTONE [Concomitant]

REACTIONS (1)
  - ERECTILE DYSFUNCTION [None]
